FAERS Safety Report 24660130 (Version 1)
Quarter: 2024Q4

REPORT INFORMATION
  Report Type: Spontaneous
  Country: SI (occurrence: SI)
  Receive Date: 20241125
  Receipt Date: 20241125
  Transmission Date: 20250115
  Serious: Yes (Other)
  Sender: PFIZER
  Company Number: SI-PFIZER INC-PV202400150878

PATIENT
  Age: 43 Year
  Sex: Male

DRUGS (1)
  1. LORLATINIB [Suspect]
     Active Substance: LORLATINIB
     Indication: Lung adenocarcinoma
     Dosage: UNK
     Dates: start: 202203

REACTIONS (3)
  - Hyperlipidaemia [Recovering/Resolving]
  - Radiation necrosis [Unknown]
  - Gliosis [Unknown]

NARRATIVE: CASE EVENT DATE: 20220501
